FAERS Safety Report 8021071-X (Version None)
Quarter: 2012Q1

REPORT INFORMATION
  Report Type: 
  Country: None (occurrence: None)
  Receive Date: 20120104
  Receipt Date: 20111230
  Transmission Date: 20120608
  Serious: Yes (Death)
  Sender: FDA-Public Use
  Company Number: FR-JNJFOC-20120100308

PATIENT
  Sex: Male

DRUGS (4)
  1. VARENICLINE TARTRATE [Suspect]
     Route: 048
     Dates: start: 20080529, end: 20080601
  2. NICORETTE CLASSIC CHEWING GUM 2MG [Suspect]
     Indication: SMOKING CESSATION THERAPY
     Dosage: ONE PIECE AS NEEDED
     Route: 048
     Dates: start: 20080526
  3. VARENICLINE TARTRATE [Suspect]
     Route: 048
     Dates: start: 20080602
  4. VARENICLINE TARTRATE [Suspect]
     Indication: SMOKING CESSATION THERAPY
     Route: 048
     Dates: start: 20080526, end: 20080528

REACTIONS (2)
  - MYOCARDITIS [None]
  - CARDIAC FAILURE [None]
